FAERS Safety Report 10738791 (Version 1)
Quarter: 2015Q1

REPORT INFORMATION
  Report Type: Spontaneous
  Country: US (occurrence: US)
  Receive Date: 20150126
  Receipt Date: 20150126
  Transmission Date: 20150721
  Serious: Yes (Hospitalization, Other)
  Sender: FDA-Public Use
  Company Number: US-TEVA-535855USA

PATIENT
  Age: 49 Year
  Sex: Male

DRUGS (3)
  1. METFORMIN [Suspect]
     Active Substance: METFORMIN HYDROCHLORIDE
     Indication: DIABETES MELLITUS
     Route: 065
  2. HALOPERIDOL. [Concomitant]
     Active Substance: HALOPERIDOL
     Indication: SCHIZOPHRENIA
     Route: 065
  3. METFORMIN [Suspect]
     Active Substance: METFORMIN HYDROCHLORIDE
     Indication: OVERDOSE
     Route: 065

REACTIONS (7)
  - Toxicity to various agents [Recovering/Resolving]
  - Haemodynamic instability [Unknown]
  - Acid base balance abnormal [Unknown]
  - Unresponsive to stimuli [Recovering/Resolving]
  - Anuria [Unknown]
  - Overdose [Recovering/Resolving]
  - Hypothermia [Unknown]
